FAERS Safety Report 10385389 (Version 2)
Quarter: 2014Q3

REPORT INFORMATION
  Report Type: Spontaneous
  Country: US (occurrence: US)
  Receive Date: 20140814
  Receipt Date: 20140814
  Transmission Date: 20150326
  Serious: Yes (Hospitalization)
  Sender: FDA-Public Use
  Company Number: US-GLAXOSMITHKLINE-A0699121A

PATIENT
  Sex: Male
  Weight: 90.9 kg

DRUGS (2)
  1. AVANDAMET [Suspect]
     Active Substance: METFORMIN HYDROCHLORIDE\ROSIGLITAZONE MALEATE
     Indication: DIABETES MELLITUS
     Dosage: 100MG TWICE PER DAY
     Route: 048
     Dates: start: 20050614, end: 20070129
  2. AVANDIA [Suspect]
     Active Substance: ROSIGLITAZONE MALEATE
     Indication: DIABETES MELLITUS
     Dosage: 4MG PER DAY
     Route: 048
     Dates: start: 20040407, end: 20070718

REACTIONS (4)
  - Chest pain [Unknown]
  - Coronary artery disease [Unknown]
  - Myocardial infarction [Unknown]
  - Injury [Unknown]
